FAERS Safety Report 18355108 (Version 5)
Quarter: 2022Q1

REPORT INFORMATION
  Report Type: Spontaneous
  Country: US (occurrence: US)
  Receive Date: 20201007
  Receipt Date: 20220331
  Transmission Date: 20220423
  Serious: No
  Sender: FDA-Public Use
  Company Number: US-PFIZER INC-2020383687

PATIENT
  Age: 76 Year
  Sex: Female

DRUGS (5)
  1. IBRANCE [Suspect]
     Active Substance: PALBOCICLIB
     Indication: Constipation
     Dosage: UNK
     Dates: start: 20190511
  2. IBRANCE [Suspect]
     Active Substance: PALBOCICLIB
     Dosage: UNK
     Dates: start: 20200618
  3. IBRANCE [Suspect]
     Active Substance: PALBOCICLIB
     Dosage: 100 MG
     Dates: start: 20190418
  4. IBRANCE [Suspect]
     Active Substance: PALBOCICLIB
     Dosage: 100 MG
     Dates: start: 20190418, end: 20210907
  5. AFINITOR [Suspect]
     Active Substance: EVEROLIMUS
     Dosage: UNK

REACTIONS (4)
  - Dry skin [Unknown]
  - Constipation [Unknown]
  - Drug ineffective [Unknown]
  - Disease progression [Unknown]
